FAERS Safety Report 18966986 (Version 1)
Quarter: 2021Q1

REPORT INFORMATION
  Report Type: Other
  Country: US (occurrence: US)
  Receive Date: 20210304
  Receipt Date: 20210304
  Transmission Date: 20210420
  Serious: Yes (Other)
  Sender: FDA-Public Use
  Company Number: US-SAPTALIS PHARMACEUTICALS,LLC-000037

PATIENT
  Age: 72 Year
  Sex: Female
  Weight: 87.5 kg

DRUGS (3)
  1. TRIAMCINOLONE ACETONIDE. [Suspect]
     Active Substance: TRIAMCINOLONE ACETONIDE
     Indication: ARTHRALGIA
     Dosage: INTRAARTICULAR LEFT HIP INJECTION OF 80MG OF TRIAMCINOLONE ACETONIDE
     Route: 014
  2. TRIAMCINOLONE ACETONIDE. [Suspect]
     Active Substance: TRIAMCINOLONE ACETONIDE
     Indication: PAIN IN EXTREMITY
     Dosage: INTRAARTICULAR LEFT HIP INJECTION OF 80MG OF TRIAMCINOLONE ACETONIDE
     Route: 014
  3. LIDOCAINE. [Concomitant]
     Active Substance: LIDOCAINE
     Indication: ARTHRALGIA
     Dosage: 3ML OF 1% LIDOCAINE

REACTIONS (1)
  - Osteonecrosis [Recovered/Resolved]
